FAERS Safety Report 7309176-X (Version None)
Quarter: 2011Q1

REPORT INFORMATION
  Report Type: 
  Country: None (occurrence: None)
  Receive Date: 20110223
  Receipt Date: 20110216
  Transmission Date: 20110831
  Serious: Yes (Other)
  Sender: FDA-Public Use
  Company Number: FR-B.I. PHARMACEUTICALS,INC./RIDGEFIELD-2011-FF-00116FF

PATIENT
  Sex: Female
  Weight: 70 kg

DRUGS (10)
  1. SPIRIVA [Concomitant]
     Dosage: 18 MCG
     Route: 055
  2. SIMVASTATIN [Concomitant]
  3. ARIXTRA [Concomitant]
     Dosage: 2.5 MG
     Dates: start: 20101101
  4. COAPROVEL [Concomitant]
     Dosage: 300 MG
  5. PAROXETINE [Concomitant]
     Dosage: 20 MG
  6. AMLODIPINE [Concomitant]
     Dosage: 5 MG
  7. PRADAXA [Suspect]
     Indication: KNEE ARTHROPLASTY
  8. PRADAXA [Suspect]
     Indication: THROMBOSIS PROPHYLAXIS
     Dosage: 220 MG
     Route: 048
     Dates: start: 20101115, end: 20101205
  9. LYRICA [Concomitant]
  10. NEXIUM [Concomitant]

REACTIONS (1)
  - PULMONARY EMBOLISM [None]
